FAERS Safety Report 9421062 (Version 2)
Quarter: 2013Q3

REPORT INFORMATION
  Report Type: Spontaneous
  Country: DK (occurrence: DK)
  Receive Date: 20130725
  Receipt Date: 20130808
  Transmission Date: 20140515
  Serious: Yes (Other)
  Sender: FDA-Public Use
  Company Number: DK-PFIZER INC-2013215759

PATIENT
  Age: 63 Year
  Sex: Female

DRUGS (1)
  1. PANTOPRAZOLE [Suspect]
     Dosage: 40 MG, DAILY
     Dates: start: 199805

REACTIONS (1)
  - Subacute cutaneous lupus erythematosus [Recovered/Resolved]
